FAERS Safety Report 24095243 (Version 1)
Quarter: 2024Q3

REPORT INFORMATION
  Report Type: Other
  Country: ES (occurrence: ES)
  Receive Date: 20240716
  Receipt Date: 20240716
  Transmission Date: 20241016
  Serious: Yes (Death, Other)
  Sender: DEXCEL
  Company Number: ES-DEXPHARM-2024-2358

PATIENT
  Age: 54 Year
  Sex: Female

DRUGS (6)
  1. ACETAMINOPHEN [Suspect]
     Active Substance: ACETAMINOPHEN
  2. DICLOFENAC [Suspect]
     Active Substance: DICLOFENAC
  3. AMOXICILLIN [Suspect]
     Active Substance: AMOXICILLIN
  4. LORMETAZEPAM [Suspect]
     Active Substance: LORMETAZEPAM
  5. DEXKETOPROFEN [Suspect]
     Active Substance: DEXKETOPROFEN
  6. CLORAZEPATE DIPOTASSIUM [Suspect]
     Active Substance: CLORAZEPATE DIPOTASSIUM

REACTIONS (9)
  - Metabolic acidosis [Fatal]
  - Hyperglycaemia [Fatal]
  - Disseminated intravascular coagulation [Fatal]
  - Acute kidney injury [Fatal]
  - Renal failure [Fatal]
  - Hepatic failure [Fatal]
  - Pancreatic failure [Fatal]
  - Toxicity to various agents [Fatal]
  - Hypovolaemic shock [Fatal]
